FAERS Safety Report 18235572 (Version 2)
Quarter: 2020Q3

REPORT INFORMATION
  Report Type: Spontaneous
  Country: US (occurrence: US)
  Receive Date: 20200905
  Receipt Date: 20200928
  Transmission Date: 20201103
  Serious: Yes (Other)
  Sender: FDA-Public Use
  Company Number: US-DRREDDYS-USA/USA/20/0126638

PATIENT
  Age: 16 Year
  Sex: Female

DRUGS (13)
  1. BIVALIRUDIN INJECTION [Suspect]
     Active Substance: BIVALIRUDIN
     Indication: ANTICOAGULANT THERAPY
  2. AZITHROMYCIN ANHYDROUS. [Concomitant]
     Active Substance: AZITHROMYCIN ANHYDROUS
     Dosage: DAY 2?5
  3. ANAKINRA [Suspect]
     Active Substance: ANAKINRA
     Dosage: DAY 11 ? 13
  4. ANTITHROMBIN III [Suspect]
     Active Substance: ANTITHROMBIN III HUMAN
     Indication: HYPOXIA
  5. METHYLPREDNISOLONE. [Suspect]
     Active Substance: METHYLPREDNISOLONE
     Indication: ACUTE LUNG INJURY
     Dosage: DAY 1 ? 3
  6. NITRIC OXIDE. [Suspect]
     Active Substance: NITRIC OXIDE
     Indication: HYPOXIA
  7. HYDROXYCHLOROQUINE [Concomitant]
     Active Substance: HYDROXYCHLOROQUINE
     Indication: COVID-19
     Dosage: DAY 1
  8. AZITHROMYCIN ANHYDROUS. [Concomitant]
     Active Substance: AZITHROMYCIN ANHYDROUS
     Indication: COVID-19
     Dosage: DAY 1?5
  9. HEPARIN SODIUM. [Suspect]
     Active Substance: HEPARIN SODIUM
     Indication: ANTICOAGULANT THERAPY
  10. ANAKINRA [Suspect]
     Active Substance: ANAKINRA
     Indication: ACUTE LUNG INJURY
     Dosage: DAY 1?5
  11. HYDROXYCHLOROQUINE [Concomitant]
     Active Substance: HYDROXYCHLOROQUINE
     Dosage: 2?5 DAYS
  12. ANAKINRA [Suspect]
     Active Substance: ANAKINRA
     Dosage: DAY 5?10
  13. ANAKINRA [Suspect]
     Active Substance: ANAKINRA
     Dosage: DAY 11 ? 13

REACTIONS (1)
  - Drug ineffective [Unknown]
